FAERS Safety Report 4338435-8 (Version None)
Quarter: 2004Q1

REPORT INFORMATION
  Report Type: 
  Country: None (occurrence: None)
  Receive Date: 20040329
  Receipt Date: 20040219
  Transmission Date: 20041129
  Serious: No
  Sender: FDA-Public Use
  Company Number: USA040259841

PATIENT
  Sex: Female

DRUGS (1)
  1. STRATTERA [Suspect]
     Dates: start: 20040203

REACTIONS (4)
  - NASAL CONGESTION [None]
  - THROAT IRRITATION [None]
  - TIC [None]
  - TREMOR [None]
